FAERS Safety Report 10273260 (Version 1)
Quarter: 2014Q2

REPORT INFORMATION
  Report Type: Spontaneous
  Country: US (occurrence: None)
  Receive Date: 20140630
  Receipt Date: 20140630
  Transmission Date: 20141212
  Serious: Yes (Hospitalization)
  Sender: FDA-Public Use
  Company Number: 2014RT000078

PATIENT
  Age: 8 Year
  Sex: Male
  Weight: 13.8 kg

DRUGS (3)
  1. PROCYSBI (CYSTEAMINE BITARTRATE) CAPSULE, DELAYED RELEASE [Suspect]
     Indication: RENAL FAILURE CHRONIC
     Dates: start: 20140116
  2. PROCYSBI (CYSTEAMINE BITARTRATE) CAPSULE, DELAYED RELEASE [Suspect]
     Indication: AMINO ACID LEVEL ABNORMAL
     Dates: start: 20140116
  3. CYSTARAN (MERCAPTAMINE HYDROCHLORIDE) [Concomitant]

REACTIONS (1)
  - Renal transplant [None]
